FAERS Safety Report 9256773 (Version 1)
Quarter: 2013Q2

REPORT INFORMATION
  Report Type: Spontaneous
  Country: US (occurrence: None)
  Receive Date: 20130423
  Receipt Date: 20130423
  Transmission Date: 20140414
  Serious: Yes (Life-Threatening)
  Sender: FDA-Public Use
  Company Number: None

PATIENT
  Age: 47 Year
  Sex: Female
  Weight: 80.74 kg

DRUGS (1)
  1. DOXYCYCLINE [Suspect]
     Indication: PNEUMONIA
     Dosage: 1    TWICE A DAY  PO
     Route: 048
     Dates: start: 20120914, end: 20120916

REACTIONS (1)
  - Suicidal ideation [None]
